FAERS Safety Report 6149804-8 (Version None)
Quarter: 2009Q2

REPORT INFORMATION
  Report Type: 
  Country: None (occurrence: None)
  Receive Date: 20090409
  Receipt Date: 20090401
  Transmission Date: 20091009
  Serious: Yes (Other)
  Sender: FDA-Public Use
  Company Number: US-B.I. PHARMACEUTICALS,INC./RIDGEFIELD-2009-BP-02617BP

PATIENT
  Sex: Male
  Weight: 104.09 kg

DRUGS (14)
  1. SPIRIVA [Suspect]
     Indication: LUNG DISORDER
     Dates: end: 20080101
  2. ALBUTEROL SULFATE [Concomitant]
     Indication: DYSPNOEA
  3. ACYCLOVIR [Concomitant]
     Indication: VIRUS TISSUE SPECIMEN TEST POSITIVE
     Dosage: 800MG
  4. PRILOSEC [Concomitant]
     Indication: ABDOMINAL DISCOMFORT
     Dosage: 20MG
  5. BAYER BACK AND BODY [Concomitant]
     Indication: PAIN
  6. ATARAX [Concomitant]
     Indication: SWELLING
  7. ATARAX [Concomitant]
     Indication: PRURITUS
  8. RE SA 6% CREAM [Concomitant]
     Indication: LIMB DISCOMFORT
  9. SENNA-S LAXATIVE AND STOOL SOFTENER [Concomitant]
  10. POTASSIUM CHLORIDE [Concomitant]
  11. TIME C B-12 [Concomitant]
  12. CENTURY SENIOR/ B12 COMPLEX [Concomitant]
  13. GLUCOSAMINE + CHONDROITIN [Concomitant]
  14. SUPER PROBIOTIC COMPLEX [Concomitant]

REACTIONS (6)
  - DRUG INEFFECTIVE [None]
  - GASTROOESOPHAGEAL REFLUX DISEASE [None]
  - HEPATIC ENZYME INCREASED [None]
  - HEPATITIS C [None]
  - NON-HODGKIN'S LYMPHOMA [None]
  - OVERDOSE [None]
